FAERS Safety Report 10461580 (Version 4)
Quarter: 2014Q4

REPORT INFORMATION
  Report Type: Report from Study
  Country: US (occurrence: US)
  Receive Date: 20140918
  Receipt Date: 20141229
  Transmission Date: 20150528
  Serious: Yes (Hospitalization, Other)
  Sender: FDA-Public Use
  Company Number: US-SA-2014SA128008

PATIENT
  Sex: Female

DRUGS (5)
  1. LANTUS SOLOSTAR [Suspect]
     Active Substance: INSULIN GLARGINE
     Indication: TYPE 2 DIABETES MELLITUS
     Dosage: DOSE:10 UNIT(S)
     Route: 065
  2. LANTUS SOLOSTAR [Suspect]
     Active Substance: INSULIN GLARGINE
     Indication: TYPE 2 DIABETES MELLITUS
     Dosage: DOSE:24 UNIT(S)
     Route: 065
  3. SOLOSTAR [Concomitant]
     Active Substance: DEVICE
  4. LANTUS SOLOSTAR [Suspect]
     Active Substance: INSULIN GLARGINE
     Indication: TYPE 2 DIABETES MELLITUS
     Dosage: DOSE:40 UNIT(S)
     Route: 065
  5. LANTUS SOLOSTAR [Suspect]
     Active Substance: INSULIN GLARGINE
     Indication: TYPE 2 DIABETES MELLITUS
     Dosage: DOSE:26 UNIT(S)
     Route: 065

REACTIONS (14)
  - Glycosylated haemoglobin increased [Unknown]
  - Shoulder operation [Unknown]
  - Walking aid user [Unknown]
  - Weight increased [Unknown]
  - Fall [Unknown]
  - Blood glucose decreased [Unknown]
  - Cellulitis [Unknown]
  - Weight decreased [Unknown]
  - Joint injury [Unknown]
  - Hospitalisation [Unknown]
  - Blood glucose increased [Unknown]
  - Pain in extremity [Unknown]
  - Gait disturbance [Unknown]
  - Pain [Unknown]
